FAERS Safety Report 20608916 (Version 3)
Quarter: 2022Q2

REPORT INFORMATION
  Report Type: Spontaneous
  Country: IT (occurrence: IT)
  Receive Date: 20220317
  Receipt Date: 20220607
  Transmission Date: 20220720
  Serious: Yes (Hospitalization, Other)
  Sender: FDA-Public Use
  Company Number: IT-SAVIO4055-20220155

PATIENT
  Age: 50 Year
  Sex: Male

DRUGS (29)
  1. OLMESARTAN MEDOXOMIL [Suspect]
     Active Substance: OLMESARTAN MEDOXOMIL
     Indication: Hypertension
     Dosage: UNK
     Route: 065
     Dates: start: 20200414, end: 20200414
  2. MEROPENEM [Suspect]
     Active Substance: MEROPENEM
     Indication: COVID-19
     Dosage: UNK, RENAL ADJUSTED DOSE
     Route: 065
     Dates: start: 2020
  3. HYDROXYCHLOROQUINE [Suspect]
     Active Substance: HYDROXYCHLOROQUINE
     Indication: COVID-19
     Dosage: RENAL ADJUSTED DOSE
     Route: 065
     Dates: start: 2020
  4. TOCILIZUMAB [Suspect]
     Active Substance: TOCILIZUMAB
     Indication: COVID-19
     Dosage: 400 MILLIGRAM
     Route: 065
     Dates: start: 2020
  5. LINEZOLID [Suspect]
     Active Substance: LINEZOLID
     Indication: COVID-19
     Dosage: UNK, RENAL ADJUSTED DOSE
     Route: 065
     Dates: start: 2020
  6. ACETAMINOPHEN [Concomitant]
     Active Substance: ACETAMINOPHEN
     Indication: Pyrexia
     Dosage: UNK
     Route: 065
     Dates: start: 2020
  7. LYSINE ACETYLSALICYLATE [Concomitant]
     Active Substance: ASPIRIN DL-LYSINE
     Indication: Pyrexia
     Dosage: UNK
     Route: 065
     Dates: start: 2020
  8. PREDNISOLONE [Concomitant]
     Active Substance: PREDNISOLONE
     Indication: COVID-19
     Dosage: UNK, QOD (EVERY OTHER DAY)
     Route: 065
  9. PREDNISOLONE [Concomitant]
     Active Substance: PREDNISOLONE
     Indication: Immunosuppressant drug therapy
     Dosage: 2.5 MILLIGRAM, QOD (2.5 MG, QOD) ON ALTERNATE DAYS
     Route: 065
  10. PREDNISOLONE [Concomitant]
     Active Substance: PREDNISOLONE
     Dosage: 10 MILLIGRAM, QD (10 MG, QD)
     Route: 065
  11. HEPARIN CALCIUM [Concomitant]
     Active Substance: HEPARIN CALCIUM
     Indication: Anticoagulant therapy
     Dosage: 5.000 IU, BID
     Route: 065
     Dates: start: 2020
  12. HEPARIN CALCIUM [Concomitant]
     Active Substance: HEPARIN CALCIUM
     Dosage: 5 IU, TID
     Route: 065
     Dates: start: 2020
  13. MORPHINE [Concomitant]
     Active Substance: MORPHINE
     Indication: Anxiety
     Dosage: 12 MG, QD
     Route: 040
  14. MORPHINE [Concomitant]
     Active Substance: MORPHINE
     Indication: Agitation
     Dosage: UNK, DOWNGRADED
     Route: 041
  15. MORPHINE [Concomitant]
     Active Substance: MORPHINE
     Indication: Anxiolytic therapy
     Dosage: LOW DOSE
     Route: 058
     Dates: start: 2020
  16. METHYLPREDNISOLONE [Concomitant]
     Active Substance: METHYLPREDNISOLONE
     Indication: Product used for unknown indication
     Dosage: 20 MILLIGRAM, QD
     Route: 042
  17. METHYLPREDNISOLONE [Concomitant]
     Active Substance: METHYLPREDNISOLONE
     Dosage: 40 MILLIGRAM, QD
     Route: 042
  18. MIDAZOLAM [Concomitant]
     Active Substance: MIDAZOLAM
     Indication: Anxiolytic therapy
     Dosage: 9.5 MG, QD
     Route: 040
  19. MIDAZOLAM [Concomitant]
     Active Substance: MIDAZOLAM
     Indication: Anxiety
  20. MIDAZOLAM [Concomitant]
     Active Substance: MIDAZOLAM
     Indication: Agitation
  21. HALOPERIDOL [Concomitant]
     Active Substance: HALOPERIDOL
     Indication: Anxiolytic therapy
     Dosage: UNK, LOW DOSE AT NIGHT
     Route: 058
  22. BROMAZEPAM [Concomitant]
     Active Substance: BROMAZEPAM
     Indication: Sedation
     Dosage: UNK LOW DOSE
     Route: 065
  23. HYDROCORTISONE [Concomitant]
     Active Substance: HYDROCORTISONE
     Indication: Product used for unknown indication
     Dosage: UNK
     Route: 040
  24. OXYGEN [Concomitant]
     Active Substance: OXYGEN
     Indication: Oxygen therapy
     Dosage: UNK, LOW FLOW
     Route: 065
  25. BISOPROLOL [Concomitant]
     Active Substance: BISOPROLOL
     Indication: Hypertension
     Dosage: UNK
     Route: 065
     Dates: start: 20200411
  26. FUROSEMIDE [Concomitant]
     Active Substance: FUROSEMIDE
     Indication: Hypertension
     Dosage: UNK
     Route: 065
     Dates: start: 20200317
  27. CHLORPHENIRAMINE MALEATE [Concomitant]
     Active Substance: CHLORPHENIRAMINE MALEATE
     Indication: Anxiolytic therapy
     Dosage: UNK
     Route: 065
  28. RAMIPRIL [Concomitant]
     Active Substance: RAMIPRIL
     Indication: Hypertension
     Dosage: UNK
     Route: 065
     Dates: start: 20200421
  29. ISOSORBIDE DINITRATE [Concomitant]
     Active Substance: ISOSORBIDE DINITRATE
     Indication: Hypertension
     Dosage: UNK
     Route: 065
     Dates: start: 20200327, end: 20200403

REACTIONS (5)
  - Drug hypersensitivity [Recovered/Resolved]
  - Off label use [Unknown]
  - Rash [Recovered/Resolved]
  - Hypersensitivity [Recovered/Resolved]
  - Diarrhoea [Recovered/Resolved]

NARRATIVE: CASE EVENT DATE: 20200101
